FAERS Safety Report 9250911 (Version 2)
Quarter: 2014Q1

REPORT INFORMATION
  Report Type: Spontaneous
  Country: US (occurrence: None)
  Receive Date: 20130305
  Receipt Date: 20140306
  Transmission Date: 20141002
  Serious: Yes (Hospitalization, Other)
  Sender: FDA-Public Use
  Company Number: 163-21880-12100133

PATIENT
  Age: 89 Year
  Sex: Female

DRUGS (37)
  1. REVLIMID (LENALIDOMIDE) (10 MILLIGRAM, CAPSULES) [Suspect]
     Indication: PLASMA CELL MYELOMA
     Route: 048
     Dates: start: 20120130, end: 201209
  2. COUMADIN (WARFARIN SODIUM) [Concomitant]
  3. DIOVAN (VALSARTAN) [Concomitant]
  4. PACERONE (AMIODARONE HYDROCHLORIDE) [Concomitant]
  5. LASIX (FUROSEMIDE) [Concomitant]
  6. KLOR-CON (POTASSIUM CHLORIDE) [Concomitant]
  7. MAGNESIUM OXIDE (MAGNESIUM OXIDE) [Concomitant]
  8. ASPIRIN (ACETYLSALICYLIC ACID) [Concomitant]
  9. NITROGLYCERINE (GLYCERYL TRINITRATE) [Concomitant]
  10. OMEPRAZOLE (OMEPRAZOLE) [Concomitant]
  11. ZOFRAN (ONDANSETRON HYDROCHLORIDE) [Concomitant]
  12. ALLOPURINOL [Concomitant]
  13. ZYRTEC ALLERGY (CETIRIZINE HYDROCHLORIDE) [Concomitant]
  14. FLONASE (FLUTICASONE PROPIONATE) [Concomitant]
  15. TYLENOL ARTHRITIS PAIN (PARACETAMOL) [Concomitant]
  16. CALTRATE 600 PLUS-VIT D (CALCIUM CARBONATE) [Concomitant]
  17. CYANOCOBALAMIN (CYANOCOBALAMIN) [Concomitant]
  18. MULTIVITAMINS [Concomitant]
  19. DEXAMETHASONE (DEXAMETHASONE) [Concomitant]
  20. PROCRIT [Concomitant]
  21. REPLESA (COLECALCIFEROL) [Concomitant]
  22. COREG (CARVEDILOL) [Concomitant]
  23. LANTUS (INSULIN GLARGINE) [Concomitant]
  24. TIAZAC (DILTIAZEM HYDROCHLORIDE) [Concomitant]
  25. CHLORTHALIDONE (CHLORTALIDONE) [Concomitant]
  26. HYDRALAZINE HYDROCHLORIDE [Concomitant]
  27. DEMADEX (TORASEMIDE) [Concomitant]
  28. NEXIUM (ESOMEPRAZOLE) [Concomitant]
  29. COLACE [Concomitant]
  30. DULCOLAX (BISACODYL) [Concomitant]
  31. GUAFENESIN (GUAIFENESIN) [Concomitant]
  32. ZINC SULFATE (ZINC SULFATE) [Concomitant]
  33. BACTROBAN (MUPIROCIN) [Concomitant]
  34. VITAMIN C [Concomitant]
  35. ZOVIRAX (ACICLOVIR) [Concomitant]
  36. AMOXICILLIN [Concomitant]
  37. PACKED RED CELLS (RED BLOOD CELLS, CONCENTRATED) [Concomitant]

REACTIONS (7)
  - Respiratory failure [None]
  - Atrial fibrillation [None]
  - Cardiac failure congestive [None]
  - Gastrointestinal haemorrhage [None]
  - Lobar pneumonia [None]
  - Renal failure [None]
  - Anaemia [None]
